FAERS Safety Report 10382683 (Version 2)
Quarter: 2014Q3

REPORT INFORMATION
  Report Type: Spontaneous
  Country: US (occurrence: US)
  Receive Date: 20140813
  Receipt Date: 20140822
  Transmission Date: 20150326
  Serious: Yes (Death, Hospitalization)
  Sender: FDA-Public Use
  Company Number: US-B.I. PHARMACEUTICALS,INC./RIDGEFIELD-2014-BI-37317BP

PATIENT
  Age: 81 Year
  Sex: Female

DRUGS (1)
  1. PRADAXA [Suspect]
     Active Substance: DABIGATRAN ETEXILATE MESYLATE
     Indication: CARDIAC DISORDER
     Dosage: 150 MG
     Route: 048

REACTIONS (5)
  - Pelvic fracture [Unknown]
  - Hip fracture [Unknown]
  - Upper limb fracture [Unknown]
  - Fall [Unknown]
  - Dementia [Fatal]

NARRATIVE: CASE EVENT DATE: 20140810
